FAERS Safety Report 14164938 (Version 2)
Quarter: 2018Q1

REPORT INFORMATION
  Report Type: Report from Study
  Country: US (occurrence: US)
  Receive Date: 20171107
  Receipt Date: 20180106
  Transmission Date: 20180508
  Serious: Yes (Other)
  Sender: FDA-Public Use
  Company Number: PHEH2017US036000

PATIENT
  Sex: Male
  Weight: 80 kg

DRUGS (2)
  1. ANTICOAGULANTS [Concomitant]
     Active Substance: UNSPECIFIED INGREDIENT
     Indication: PRODUCT USED FOR UNKNOWN INDICATION
     Route: 065
  2. ENTRESTO [Suspect]
     Active Substance: SACUBITRIL\VALSARTAN
     Indication: CARDIOMYOPATHY
     Dosage: 1 DF (SACUBITRIL 49 MG, VALSARTAN 51 MG), BID
     Route: 048
     Dates: start: 20161227

REACTIONS (1)
  - Blindness transient [Recovered/Resolved]
